FAERS Safety Report 25013610 (Version 1)
Quarter: 2025Q1

REPORT INFORMATION
  Report Type: Spontaneous
  Country: US (occurrence: None)
  Receive Date: 20250226
  Receipt Date: 20250226
  Transmission Date: 20250408
  Serious: Yes (Life-Threatening, Hospitalization, Other)
  Sender: FDA-CTU
  Company Number: None

PATIENT
  Age: 58 Year
  Sex: Male
  Weight: 86.5 kg

DRUGS (10)
  1. DAPAGLIFLOZIN [Suspect]
     Active Substance: DAPAGLIFLOZIN
     Indication: Heart failure with reduced ejection fraction
     Dosage: FREQUENCY : DAILY;?
     Dates: start: 20231201, end: 20241220
  2. acetaminophen (TYLENOL) tab [Concomitant]
     Dates: start: 20240105
  3. calcium carbonate (OS-CAL) tab [Concomitant]
     Dates: start: 20231224, end: 20241223
  4. carvedilol (COREG) tab [Concomitant]
     Dates: start: 20240919
  5. diclofenac sodium (VOLTAREN) gel [Concomitant]
     Dates: start: 20240628
  6. ergocalciferol (VITAMIN D) cap [Concomitant]
     Dates: start: 20240712
  7. furosemide (LASIX tab [Concomitant]
     Dates: start: 20240919
  8. potassium phosphate, monobasic, (K-PHOS) tab [Concomitant]
     Dates: start: 20241211
  9. sacubitril-valsartan (ENTRESTO) tab [Concomitant]
     Dates: start: 20240919
  10. spironolactone (ALDACTONE) tab [Concomitant]
     Dates: start: 20240919

REACTIONS (10)
  - Penile swelling [None]
  - Scrotal swelling [None]
  - Penis injury [None]
  - Penile pain [None]
  - Penile discharge [None]
  - Penile haemorrhage [None]
  - Pyrexia [None]
  - Scrotal exploration [None]
  - Scan abnormal [None]
  - Skin graft [None]

NARRATIVE: CASE EVENT DATE: 20241220
